FAERS Safety Report 23832876 (Version 2)
Quarter: 2024Q3

REPORT INFORMATION
  Report Type: Spontaneous
  Country: US (occurrence: US)
  Receive Date: 20240508
  Receipt Date: 20240829
  Transmission Date: 20241016
  Serious: No
  Sender: SANOFI AVENTIS
  Company Number: US-SA-SAC20240503000485

PATIENT
  Age: 67 Year
  Sex: Female

DRUGS (2)
  1. DUPIXENT [Suspect]
     Active Substance: DUPILUMAB
     Indication: Asthma
     Dosage: 600 MG, 1X
     Route: 058
     Dates: start: 20230804, end: 20230804
  2. DUPIXENT [Suspect]
     Active Substance: DUPILUMAB
     Dosage: 300 MG, QOW
     Route: 058
     Dates: start: 202308

REACTIONS (7)
  - Blood cholesterol increased [Unknown]
  - Candida infection [Recovered/Resolved]
  - Viral infection [Recovered/Resolved]
  - Asthma [Recovered/Resolved]
  - Cough [Recovered/Resolved]
  - Sneezing [Recovered/Resolved]
  - Dyspnoea [Recovered/Resolved]

NARRATIVE: CASE EVENT DATE: 20240701
